FAERS Safety Report 7522331-9 (Version None)
Quarter: 2011Q2

REPORT INFORMATION
  Report Type: 
  Country: None (occurrence: None)
  Receive Date: 20110603
  Receipt Date: 20110523
  Transmission Date: 20111010
  Serious: Yes (Hospitalization, Other)
  Sender: FDA-Public Use
  Company Number: PHHY2011BR45171

PATIENT
  Sex: Female

DRUGS (4)
  1. CLOXAZOLAM [Suspect]
     Dosage: UNK UKN, UNK
  2. LOSARTAN POTASSIUM [Concomitant]
     Dosage: UNK UKN, UNK
  3. FORMOTEROL FUMARATE [Suspect]
     Dosage: UNK UKN, UNK
  4. AMITRIPTYLINE HCL [Concomitant]
     Dosage: UNK UKN, UNK

REACTIONS (1)
  - CONVULSION [None]
